FAERS Safety Report 11107018 (Version 2)
Quarter: 2015Q2

REPORT INFORMATION
  Report Type: Report from Study
  Country: JP (occurrence: JP)
  Receive Date: 20150512
  Receipt Date: 20150630
  Transmission Date: 20150821
  Serious: Yes (Death)
  Sender: FDA-Public Use
  Company Number: JP-BAYER-2015-218888

PATIENT
  Age: 73 Year
  Sex: Male
  Weight: 70 kg

DRUGS (4)
  1. STIVARGA [Suspect]
     Active Substance: REGORAFENIB
     Indication: RECTAL CANCER
     Dosage: 120 MG, QD (3 WEEKS AND OFFFOR 1 WEEK)
     Route: 048
     Dates: start: 20150219, end: 20150311
  2. STIVARGA [Suspect]
     Active Substance: REGORAFENIB
     Indication: RECTAL CANCER
     Dosage: 80 MG, QD
     Route: 048
     Dates: start: 20150416, end: 20150427
  3. STIVARGA [Suspect]
     Active Substance: REGORAFENIB
     Indication: RECTAL CANCER
     Dosage: 160 MG, QD (3 WEEKS AND OFFFOR 1 WEEK)
     Route: 048
     Dates: start: 20150123, end: 20150212
  4. STIVARGA [Suspect]
     Active Substance: REGORAFENIB
     Indication: RECTAL CANCER
     Dosage: 120 MG, QD (3 WEEKS AND OFFFOR 1 WEEK)
     Route: 048
     Dates: start: 20150319, end: 20150408

REACTIONS (4)
  - Malaise [Recovering/Resolving]
  - Malaise [Not Recovered/Not Resolved]
  - Rectal cancer [Fatal]
  - Palmar-plantar erythrodysaesthesia syndrome [Unknown]

NARRATIVE: CASE EVENT DATE: 20150212
